FAERS Safety Report 8866922 (Version 1)
Quarter: 2012Q4

REPORT INFORMATION
  Report Type: 
  Country: US (occurrence: US)
  Receive Date: 20121025
  Receipt Date: 20121025
  Transmission Date: 20130627
  Serious: No
  Sender: FDA-Public Use
  Company Number: US-AMGEN-USASP2012013974

PATIENT
  Age: 48 Year
  Sex: Female
  Weight: 104.31 kg

DRUGS (8)
  1. ENBREL [Suspect]
     Indication: PRODUCT USED FOR UNKNOWN INDICATION
     Dosage: 50 mg, qwk
     Route: 058
  2. MORPHINE SULFATE [Concomitant]
     Dosage: 30 mg, UNK
  3. NORTRIPTYLINE HYDROCHLORIDE [Concomitant]
     Dosage: 10 mg, UNK
  4. LISINOPRIL [Concomitant]
     Dosage: 10 mg, UNK
  5. CITALOPRAM [Concomitant]
     Dosage: 40 mg, UNK
  6. OMEPRAZOLE [Concomitant]
     Dosage: 20 mg, UNK
  7. LEVOTHROID [Concomitant]
     Dosage: 125 mug, UNK
  8. IRON [Concomitant]
     Dosage: 50 mg, UNK

REACTIONS (3)
  - Nasopharyngitis [Unknown]
  - Injection site bruising [Unknown]
  - Injection site erythema [Unknown]
